FAERS Safety Report 13298397 (Version 3)
Quarter: 2017Q1

REPORT INFORMATION
  Report Type: Spontaneous
  Country: US (occurrence: US)
  Receive Date: 20170306
  Receipt Date: 20170315
  Transmission Date: 20170428
  Serious: Yes (Other)
  Sender: FDA-Public Use
  Company Number: US-BAYER-2017-042305

PATIENT
  Age: 16 Year
  Sex: Male

DRUGS (1)
  1. HELIXATE FS [Suspect]
     Active Substance: ANTIHEMOPHILIC FACTOR, HUMAN RECOMBINANT
     Indication: FACTOR VIII DEFICIENCY
     Dosage: 1061 IU, TIW
     Route: 042
     Dates: start: 20161220

REACTIONS (1)
  - Renal haemorrhage [Unknown]

NARRATIVE: CASE EVENT DATE: 20170228
